FAERS Safety Report 9303754 (Version 1)
Quarter: 2013Q2

REPORT INFORMATION
  Report Type: Report from Study
  Country: US (occurrence: None)
  Receive Date: 20130520
  Receipt Date: 20130520
  Transmission Date: 20140414
  Serious: Yes (Hospitalization)
  Sender: FDA-Public Use
  Company Number: ACO_34309_2013

PATIENT
  Sex: Female

DRUGS (3)
  1. AMPYRA (DALFAMPRIDINE) TABLET, 10MG [Suspect]
     Indication: MULTIPLE SCLEROSIS
  2. AUBAGIO [Suspect]
  3. COPAXONE (GLATIRAMER ACETATE) [Concomitant]

REACTIONS (4)
  - Pneumonia [None]
  - Musculoskeletal disorder [None]
  - Balance disorder [None]
  - Multiple sclerosis [None]
